FAERS Safety Report 8523689-4 (Version None)
Quarter: 2012Q3

REPORT INFORMATION
  Report Type: 
  Country: None (occurrence: None)
  Receive Date: 20120720
  Receipt Date: 20120712
  Transmission Date: 20120928
  Serious: Yes (Hospitalization)
  Sender: FDA-Public Use
  Company Number: CA-JNJFOC-20111205617

PATIENT
  Sex: Female
  Weight: 124 kg

DRUGS (7)
  1. IRON [Concomitant]
  2. ASCORBIC ACID [Concomitant]
  3. REMICADE [Suspect]
     Dosage: 4TH DOSE
     Route: 042
     Dates: start: 20111014
  4. IMURAN [Concomitant]
     Route: 048
  5. FOLIC ACID [Concomitant]
  6. REMICADE [Suspect]
     Indication: CROHN'S DISEASE
     Route: 042
  7. CALCIUM [Concomitant]

REACTIONS (7)
  - INTESTINAL OBSTRUCTION [None]
  - NAIL INFECTION [None]
  - ADVERSE EVENT [None]
  - INFECTION [None]
  - GINGIVAL ULCERATION [None]
  - PYREXIA [None]
  - INFLUENZA [None]
